FAERS Safety Report 8427559-1 (Version None)
Quarter: 2012Q2

REPORT INFORMATION
  Report Type: 
  Country: None (occurrence: None)
  Receive Date: 20120611
  Receipt Date: 20120606
  Transmission Date: 20120825
  Serious: Yes (Hospitalization)
  Sender: FDA-Public Use
  Company Number: US-BAYER-2012-056429

PATIENT
  Age: 55 Year
  Sex: Male

DRUGS (1)
  1. NEXAVAR [Suspect]
     Indication: HEPATIC NEOPLASM MALIGNANT
     Dosage: 200 MG, BID
     Dates: start: 20120525, end: 20120605

REACTIONS (7)
  - JAUNDICE [None]
  - DEHYDRATION [None]
  - NAUSEA [None]
  - PYREXIA [None]
  - FATIGUE [None]
  - RASH [None]
  - AMMONIA INCREASED [None]
